FAERS Safety Report 16515561 (Version 1)
Quarter: 2019Q3

REPORT INFORMATION
  Report Type: Spontaneous
  Country: US (occurrence: US)
  Receive Date: 20190522
  Receipt Date: 20190522
  Transmission Date: 20191004
  Serious: No
  Sender: FDA-Public Use
  Company Number: None

PATIENT
  Age: 63 Year
  Sex: Female

DRUGS (1)
  1. CYCLOSPORINE CAP 100MG [Suspect]
     Active Substance: CYCLOSPORINE
     Dates: start: 201805

REACTIONS (4)
  - Insurance issue [None]
  - Incorrect dose administered [None]
  - Product dose omission [None]
  - Wrong technique in product usage process [None]

NARRATIVE: CASE EVENT DATE: 20190506
